FAERS Safety Report 14480616 (Version 2)
Quarter: 2018Q1

REPORT INFORMATION
  Report Type: Spontaneous
  Country: US (occurrence: US)
  Receive Date: 20180202
  Receipt Date: 20180206
  Transmission Date: 20180509
  Serious: No
  Sender: FDA-Public Use
  Company Number: PHHY2018US017792

PATIENT
  Sex: Female

DRUGS (3)
  1. SYSTANE LUBRICANT [Suspect]
     Active Substance: POLYETHYLENE GLYCOL 400\PROPYLENE GLYCOL
     Indication: EYE PRURITUS
     Dosage: UNK, QD
     Route: 047
     Dates: start: 20180126
  2. SYSTANE LUBRICANT [Suspect]
     Active Substance: POLYETHYLENE GLYCOL 400\PROPYLENE GLYCOL
     Indication: FOREIGN BODY SENSATION IN EYES
  3. SYSTANE LUBRICANT [Suspect]
     Active Substance: POLYETHYLENE GLYCOL 400\PROPYLENE GLYCOL
     Indication: LACRIMATION INCREASED

REACTIONS (1)
  - Eye pain [Recovered/Resolved]
